FAERS Safety Report 5041744-0 (Version None)
Quarter: 2006Q2

REPORT INFORMATION
  Report Type: 
  Country: None (occurrence: None)
  Receive Date: 20060630
  Receipt Date: 20060621
  Transmission Date: 20061013
  Serious: Yes (Hospitalization, Disabling, Other)
  Sender: FDA-Public Use
  Company Number: 2005148642

PATIENT
  Age: 52 Year
  Sex: Male
  Weight: 86.1834 kg

DRUGS (2)
  1. CELEBREX [Suspect]
     Indication: INFLAMMATION
     Dosage: 200 MG (200 MG, 1 IN 1 D) ORAL
     Route: 048
     Dates: start: 19991112
  2. CELEBREX [Suspect]
     Indication: PAIN
     Dosage: 200 MG (200 MG, 1 IN 1 D) ORAL
     Route: 048
     Dates: start: 19991112

REACTIONS (7)
  - ABDOMINAL PAIN UPPER [None]
  - CARDIAC ARREST [None]
  - CARDIAC FAILURE [None]
  - MYOCARDIAL INFARCTION [None]
  - SYNCOPE [None]
  - TENDONITIS [None]
  - VENTRICULAR ASYSTOLE [None]
